FAERS Safety Report 8094058-9 (Version None)
Quarter: 2012Q1

REPORT INFORMATION
  Report Type: 
  Country: None (occurrence: None)
  Receive Date: 20120131
  Receipt Date: 20120130
  Transmission Date: 20120608
  Serious: No
  Sender: FDA-Public Use
  Company Number: PHEH2012US002383

PATIENT
  Sex: Female

DRUGS (5)
  1. FUROSEMIDE [Concomitant]
     Dosage: 400 MG/DAY
  2. SYNTHROID [Concomitant]
     Dosage: 112 UG/DAY
  3. LISINOPRIL [Concomitant]
     Dosage: UNK UKN, UNK
  4. TASIGNA [Suspect]
     Indication: LEUKAEMIA
     Dosage: 400 MG, BID
     Route: 048
     Dates: start: 20110224
  5. VENLAFAXINE [Concomitant]
     Dosage: 150 MG/ DAY

REACTIONS (3)
  - URTICARIA [None]
  - ERYTHEMA [None]
  - PRURITUS GENERALISED [None]
